FAERS Safety Report 23800046 (Version 3)
Quarter: 2024Q2

REPORT INFORMATION
  Report Type: Spontaneous
  Country: US (occurrence: US)
  Receive Date: 20240430
  Receipt Date: 20240518
  Transmission Date: 20240716
  Serious: Yes (Hospitalization, Other)
  Sender: FDA-Public Use
  Company Number: US-SA-SAC20240416000714

PATIENT
  Age: 78 Year
  Sex: Male
  Weight: 141 kg

DRUGS (6)
  1. DUPIXENT [Suspect]
     Active Substance: DUPILUMAB
     Indication: Pemphigoid
     Dosage: 600 MG, 1X
     Route: 058
  2. DUPIXENT [Suspect]
     Active Substance: DUPILUMAB
     Dosage: 300 MG, QOW
     Route: 058
  3. MYCOPHENOLATE MOFETIL [Suspect]
     Active Substance: MYCOPHENOLATE MOFETIL
     Dosage: UNK
  4. BUMEX [Concomitant]
     Active Substance: BUMETANIDE
     Dosage: 2 MG EACH MORNING
  5. FLUOXETINE [Concomitant]
     Active Substance: FLUOXETINE HYDROCHLORIDE
     Dosage: 10 MG
  6. FLUOXETINE [Concomitant]
     Active Substance: FLUOXETINE HYDROCHLORIDE
     Dosage: 20 MG, QD

REACTIONS (22)
  - Delirium [Unknown]
  - Unresponsive to stimuli [Unknown]
  - Pemphigoid [Unknown]
  - Condition aggravated [Unknown]
  - Paraesthesia [Unknown]
  - Skin haemorrhage [Unknown]
  - Dysarthria [Unknown]
  - Blister [Unknown]
  - Skin lesion [Unknown]
  - Condition aggravated [Unknown]
  - Visual impairment [Unknown]
  - Discomfort [Unknown]
  - Skin wound [Unknown]
  - Condition aggravated [Unknown]
  - Hepatic enzyme increased [Unknown]
  - Skin exfoliation [Unknown]
  - Skin laceration [Unknown]
  - Oropharyngeal pain [Unknown]
  - Oedema [Unknown]
  - Rash [Unknown]
  - Product administered at inappropriate site [Unknown]
  - Product use in unapproved indication [Unknown]

NARRATIVE: CASE EVENT DATE: 20240401
